FAERS Safety Report 7767230-2 (Version None)
Quarter: 2011Q3

REPORT INFORMATION
  Report Type: 
  Country: None (occurrence: None)
  Receive Date: 20110922
  Receipt Date: 20110318
  Transmission Date: 20111222
  Serious: Yes (Other)
  Sender: FDA-Public Use
  Company Number: US-ASTRAZENECA-2008UW03585

PATIENT
  Age: 62 Year
  Sex: Male
  Weight: 77.1 kg

DRUGS (24)
  1. SEROQUEL [Suspect]
     Indication: SLEEP DISORDER
     Route: 048
     Dates: start: 19990724
  2. HYDROXYZINE HCL [Concomitant]
     Dates: start: 20000328
  3. CYPROHEPTADINE HCL [Concomitant]
     Dates: start: 20000411
  4. EXCEDRIN (MIGRAINE) [Concomitant]
     Dates: start: 20020308
  5. ASPIRIN [Concomitant]
     Dosage: TID
     Dates: start: 20050121
  6. CELEXA [Concomitant]
     Route: 048
     Dates: start: 20050121
  7. CYCLOPHOSPHAMIDE [Concomitant]
     Dates: start: 20000229
  8. TOPROL-XL [Concomitant]
     Dosage: 100 MG TWO QD, 100 MG BID
     Route: 048
     Dates: start: 20020308
  9. STELAZINE [Concomitant]
  10. SEROQUEL [Suspect]
     Indication: HALLUCINATION, AUDITORY
     Route: 048
     Dates: start: 19990724
  11. HALDOL [Concomitant]
  12. THORAZINE [Concomitant]
  13. SEROQUEL [Suspect]
     Route: 048
     Dates: start: 20090101
  14. SEROQUEL [Suspect]
     Route: 048
     Dates: start: 20090101
  15. HYDROCHLOROTHIAZIDE [Concomitant]
     Dates: start: 20020308
  16. MILK OF MAGNESIA TAB [Concomitant]
     Dosage: ONCE WEEKLY
     Dates: start: 20020308
  17. ULTRAM [Concomitant]
     Route: 048
     Dates: start: 19991022
  18. CEPHALEXIN [Concomitant]
     Dates: start: 20000328
  19. ZYPREXA [Concomitant]
     Dosage: 10 MG HALF QD
     Route: 048
     Dates: start: 20020308
  20. LIPITOR [Concomitant]
     Dosage: 20 MG QD
     Dates: start: 20050121
  21. SEROQUEL [Suspect]
     Dosage: 100 200MG
     Route: 048
     Dates: start: 19990724, end: 20070824
  22. METOPROLOL TARTRATE [Concomitant]
     Dates: start: 19991022
  23. SEROQUEL [Suspect]
     Dosage: 100 200MG
     Route: 048
     Dates: start: 19990724, end: 20070824
  24. CIMETIDINE [Concomitant]
     Dosage: 300 MG QD-BID PRN
     Route: 048
     Dates: start: 19990702

REACTIONS (6)
  - HYPERGLYCAEMIA [None]
  - HYPERLIPIDAEMIA [None]
  - TYPE 2 DIABETES MELLITUS [None]
  - DIABETIC COMA [None]
  - BLOOD TRIGLYCERIDES INCREASED [None]
  - BLOOD CHOLESTEROL INCREASED [None]
